FAERS Safety Report 4660181-1 (Version None)
Quarter: 2005Q2

REPORT INFORMATION
  Report Type: 
  Country: None (occurrence: None)
  Receive Date: 20050427
  Receipt Date: 20050131
  Transmission Date: 20051028
  Serious: No
  Sender: FDA-Public Use
  Company Number: 212172

PATIENT
  Age: 43 Year
  Sex: Female

DRUGS (1)
  1. XOLAIR [Suspect]

REACTIONS (3)
  - ASTHENIA [None]
  - EAR PAIN [None]
  - UPPER RESPIRATORY TRACT INFECTION [None]
